FAERS Safety Report 10042996 (Version 1)
Quarter: 2014Q1

REPORT INFORMATION
  Report Type: Spontaneous
  Country: US (occurrence: US)
  Receive Date: 20140328
  Receipt Date: 20140328
  Transmission Date: 20141002
  Serious: Yes (Other)
  Sender: FDA-Public Use
  Company Number: US-BEH-2014041270

PATIENT
  Sex: Female

DRUGS (1)
  1. HUMATE-P [Suspect]

REACTIONS (1)
  - Lower gastrointestinal haemorrhage [Not Recovered/Not Resolved]
